FAERS Safety Report 9797059 (Version 1)
Quarter: 2014Q1

REPORT INFORMATION
  Report Type: Spontaneous
  Country: GB (occurrence: GB)
  Receive Date: 20140105
  Receipt Date: 20140105
  Transmission Date: 20141002
  Serious: Yes (Hospitalization, Congenital Anomaly)
  Sender: FDA-Public Use
  Company Number: GB-MYLANLABS-2013S1028948

PATIENT
  Sex: Female
  Weight: 3.04 kg

DRUGS (6)
  1. DICLOFENAC [Suspect]
     Indication: BACK PAIN
     Dosage: 75MG AS REQUIRED
     Route: 064
  2. DICLOFENAC [Suspect]
     Indication: SCIATICA
     Dosage: 75MG AS REQUIRED
     Route: 064
  3. DICLOFENAC [Suspect]
     Indication: BACK PAIN
     Dosage: 75MG FOR 2 WEEKS
     Route: 064
  4. DICLOFENAC [Suspect]
     Indication: SCIATICA
     Dosage: 75MG FOR 2 WEEKS
     Route: 064
  5. DICLOFENAC [Suspect]
     Indication: BACK PAIN
     Dosage: 1-2 TABLETS (75-150MG) PER DAY
     Route: 064
  6. DICLOFENAC [Suspect]
     Indication: SCIATICA
     Dosage: 1-2 TABLETS (75-150MG) PER DAY
     Route: 064

REACTIONS (5)
  - Ductus arteriosus premature closure [Unknown]
  - Right ventricular hypertrophy [Recovered/Resolved]
  - Hydrops foetalis [Unknown]
  - Foetal exposure during pregnancy [Unknown]
  - Cardiac failure [Recovered/Resolved]
